FAERS Safety Report 4628424-8 (Version None)
Quarter: 2005Q2

REPORT INFORMATION
  Report Type: 
  Country: None (occurrence: None)
  Receive Date: 20050404
  Receipt Date: 20050328
  Transmission Date: 20051028
  Serious: Yes (Death)
  Sender: FDA-Public Use
  Company Number: 2005UW04781

PATIENT
  Age: 40 Year
  Sex: Male

DRUGS (3)
  1. ELAVIL [Suspect]
  2. NORTRIPTYLINE HCL [Suspect]
  3. METHADONE HYDROCHLORIDE [Suspect]

REACTIONS (5)
  - ACCIDENTAL OVERDOSE [None]
  - DRUG TOXICITY [None]
  - INTENTIONAL MISUSE [None]
  - OFF LABEL USE [None]
  - SELF-MEDICATION [None]
